FAERS Safety Report 4838909-7 (Version None)
Quarter: 2005Q4

REPORT INFORMATION
  Report Type: 
  Country: None (occurrence: None)
  Receive Date: 20051024
  Receipt Date: 20050928
  Transmission Date: 20060501
  Serious: No
  Sender: FDA-Public Use
  Company Number: 218133

PATIENT
  Age: 45 Year
  Sex: Female
  Weight: 52.6 kg

DRUGS (2)
  1. XOLAIR [Suspect]
     Indication: ASTHMA
     Dosage: 150 MG, 1/MONTH, SUBCUTANEOUS
     Route: 058
     Dates: start: 20050810
  2. PRE-MEDICATIONS (UNK INGREDIENTS) (GENERIC COMPONENTS) [Concomitant]

REACTIONS (1)
  - MIGRAINE [None]
